FAERS Safety Report 18161677 (Version 1)
Quarter: 2020Q3

REPORT INFORMATION
  Report Type: Spontaneous
  Country: US (occurrence: US)
  Receive Date: 20200817
  Receipt Date: 20200817
  Transmission Date: 20201103
  Serious: No
  Sender: FDA-Public Use
  Company Number: None

PATIENT
  Age: 49 Year
  Sex: Male
  Weight: 121.6 kg

DRUGS (1)
  1. IBRUTINIB [Suspect]
     Active Substance: IBRUTINIB
     Indication: MANTLE CELL LYMPHOMA RECURRENT
     Route: 048
     Dates: start: 20200507, end: 20200526

REACTIONS (4)
  - Urethral discharge [None]
  - Mucosal inflammation [None]
  - Stevens-Johnson syndrome [None]
  - Throat irritation [None]

NARRATIVE: CASE EVENT DATE: 20200526
